FAERS Safety Report 5236005-0 (Version None)
Quarter: 2007Q1

REPORT INFORMATION
  Report Type: 
  Country: None (occurrence: None)
  Receive Date: 20061208
  Receipt Date: 20060324
  Transmission Date: 20070707
  Serious: Yes (Other)
  Sender: FDA-Public Use
  Company Number: 2006UW05228

PATIENT
  Age: 58 Year
  Sex: Female
  Weight: 96.161 kg

DRUGS (17)
  1. CRESTOR [Suspect]
     Indication: BLOOD CHOLESTEROL INCREASED
     Dosage: 10 MG PO
     Route: 048
  2. CRESTOR [Suspect]
     Indication: BLOOD CHOLESTEROL INCREASED
     Dosage: 10 MG PO
     Route: 048
  3. PROCARDIA [Concomitant]
  4. METHADONE HCL [Concomitant]
  5. TRIAMTERENE AND HYDROCHLOROTHIAZIDE ^HARRIS^ [Concomitant]
  6. QUINAPRIL [Concomitant]
  7. CITALOPRAM HYDROBROMIDE [Concomitant]
  8. SYNTHROID [Concomitant]
  9. NEXIUM [Concomitant]
  10. DICLOFENAC SODIUM [Concomitant]
  11. VITAMIN CAP [Concomitant]
  12. WELLBUTRIN [Concomitant]
  13. OXYCODONE HCL [Concomitant]
  14. VIVELLE [Concomitant]
  15. IMITREX ^CERENEX^ [Concomitant]
  16. ALEVE [Concomitant]
  17. ZELNORM [Concomitant]

REACTIONS (4)
  - PAIN [None]
  - PAIN IN EXTREMITY [None]
  - PYREXIA [None]
  - SWELLING [None]
